FAERS Safety Report 5562935-6 (Version None)
Quarter: 2007Q4

REPORT INFORMATION
  Report Type: 
  Country: None (occurrence: None)
  Receive Date: 20071217
  Receipt Date: 20071203
  Transmission Date: 20080405
  Serious: Yes (Hospitalization)
  Sender: FDA-Public Use
  Company Number: US-ROCHE-535069

PATIENT
  Sex: Female

DRUGS (1)
  1. BONIVA [Suspect]
     Indication: OSTEOPOROSIS
     Route: 048

REACTIONS (5)
  - BONE PAIN [None]
  - DYSPNOEA [None]
  - HYPERSENSITIVITY [None]
  - MYOCARDIAL INFARCTION [None]
  - RASH [None]
